FAERS Safety Report 4330109-2 (Version None)
Quarter: 2004Q1

REPORT INFORMATION
  Report Type: 
  Country: None (occurrence: None)
  Receive Date: 20040329
  Receipt Date: 20040316
  Transmission Date: 20041129
  Serious: Yes (Hospitalization)
  Sender: FDA-Public Use
  Company Number: JP-JNJFOC-20040303797

PATIENT
  Age: 35 Year
  Sex: Male
  Weight: 50 kg

DRUGS (5)
  1. REMICADE [Suspect]
     Indication: ANAL FISTULA
     Dosage: 250 MG, 1 IN 1 AS NECESSARY, INTRAVENOUS DRIP
     Route: 041
     Dates: start: 20020613, end: 20020613
  2. REMICADE [Suspect]
     Indication: CROHN'S DISEASE
     Dosage: 250 MG, 1 IN 1 AS NECESSARY, INTRAVENOUS DRIP
     Route: 041
     Dates: start: 20020613, end: 20020613
  3. PENTASA [Concomitant]
  4. MINOCIN [Concomitant]
  5. ENTERAL NUTRITION (SOLUTIONS FOR PARENTERAL NUTRITION) [Concomitant]

REACTIONS (1)
  - TUBERCULOSIS [None]
